FAERS Safety Report 7313237-9 (Version None)
Quarter: 2011Q1

REPORT INFORMATION
  Report Type: 
  Country: None (occurrence: None)
  Receive Date: 20110215
  Receipt Date: 20110215
  Transmission Date: 20110831
  Serious: Yes (Death, Hospitalization)
  Sender: FDA-Public Use
  Company Number: None

PATIENT
  Age: 63 Year
  Sex: Female

DRUGS (8)
  1. FLONASE [Concomitant]
  2. LASIX [Concomitant]
  3. SPIRONOLACTONE [Concomitant]
  4. PERCOCET [Concomitant]
  5. ANASTROZOLE (ARIMIDEX) [Suspect]
     Indication: BREAST CANCER
     Dosage: 1MG ONCE A DAY ORAL (047)
     Route: 048
     Dates: start: 20100804, end: 20101201
  6. ZOMETA [Concomitant]
  7. IBUPROFEN [Concomitant]
  8. GLUCOPHAGE [Concomitant]

REACTIONS (5)
  - MALIGNANT ASCITES [None]
  - HYPOTENSION [None]
  - NEOPLASM MALIGNANT [None]
  - ATRIAL FIBRILLATION [None]
  - BREAST CANCER [None]
